FAERS Safety Report 24882583 (Version 1)
Quarter: 2025Q1

REPORT INFORMATION
  Report Type: Spontaneous
  Country: CN (occurrence: CN)
  Receive Date: 20250124
  Receipt Date: 20250124
  Transmission Date: 20250408
  Serious: Yes (Death, Hospitalization)
  Sender: BIOGEN
  Company Number: CN-BIOGEN-2025BI01297838

PATIENT
  Age: 6 Month
  Sex: Male

DRUGS (1)
  1. SPINRAZA [Suspect]
     Active Substance: NUSINERSEN
     Indication: Spinal muscular atrophy
     Route: 050
     Dates: start: 20250108, end: 20250108

REACTIONS (2)
  - Death [Fatal]
  - Pulmonary oedema [Unknown]

NARRATIVE: CASE EVENT DATE: 20250101
